FAERS Safety Report 10772868 (Version 1)
Quarter: 2015Q1

REPORT INFORMATION
  Report Type: Spontaneous
  Country: US (occurrence: US)
  Receive Date: 20150207
  Receipt Date: 20150207
  Transmission Date: 20150721
  Serious: No
  Sender: FDA-Public Use
  Company Number: US-BAUSCH-SYM-2013-13840

PATIENT
  Sex: Female

DRUGS (1)
  1. XENAZINE [Suspect]
     Active Substance: TETRABENAZINE
     Indication: TORTICOLLIS
     Dosage: 12.5 MG 3 TABLETS THREE TIMES DAILY
     Route: 048
     Dates: start: 20131007

REACTIONS (3)
  - Off label use [Unknown]
  - Somnolence [Unknown]
  - Musculoskeletal stiffness [Unknown]
